FAERS Safety Report 5289241-1 (Version None)
Quarter: 2007Q2

REPORT INFORMATION
  Report Type: 
  Country: None (occurrence: None)
  Receive Date: 20070403
  Receipt Date: 20070403
  Transmission Date: 20071010
  Serious: Yes (Other)
  Sender: FDA-Public Use
  Company Number: None

PATIENT
  Sex: Female
  Weight: 59.8748 kg

DRUGS (2)
  1. CLINDAMYCIN [Suspect]
     Indication: GINGIVAL INFECTION
     Dosage: 150 MG 3X/DAY FOR 7 DAYS PO
     Route: 048
     Dates: start: 20070217, end: 20070224
  2. CLINDAMYCIN [Suspect]
     Indication: INFECTION PROPHYLAXIS
     Dosage: 150 MG 3X/DAY FOR 7 DAYS PO
     Route: 048
     Dates: start: 20070217, end: 20070224

REACTIONS (2)
  - CLOSTRIDIAL INFECTION [None]
  - DIARRHOEA [None]
